FAERS Safety Report 8857482 (Version 2)
Quarter: 2013Q1

REPORT INFORMATION
  Report Type: Spontaneous
  Country: US (occurrence: US)
  Receive Date: 20121024
  Receipt Date: 20130103
  Transmission Date: 20140127
  Serious: Yes (Hospitalization, Other)
  Sender: FDA-Public Use
  Company Number: US-BAYER-2012-111170

PATIENT
  Age: 67 Year
  Sex: Female
  Weight: 53.06 kg

DRUGS (28)
  1. BETASERON [Suspect]
     Indication: MULTIPLE SCLEROSIS
     Dosage: 0.3 MG, QOD
     Route: 058
  2. GABAPENTIN [Concomitant]
     Indication: NEURALGIA
     Dosage: 900 MG, UNK
  3. AMLODIPINE [Concomitant]
     Indication: BLOOD PRESSURE ABNORMAL
     Dosage: 5 MG, UNK
  4. ATENOLOL [Concomitant]
     Indication: BLOOD PRESSURE ABNORMAL
     Dosage: 25 MG, UNK
  5. SYNTHROID [Concomitant]
     Dosage: 75 MCG/24HR, UNK
  6. AZELASTINE HYDROCHLORIDE [Concomitant]
     Indication: MULTIPLE ALLERGIES
     Dosage: 137 MCG/SPRAY, 2 SPRAYSNOSTRIL QD
     Route: 045
  7. FLONASE [Concomitant]
     Indication: MULTIPLE ALLERGIES
     Dosage: 50 MCG SPRAY, 2 SPRAYS/NOSTRIL QD
  8. ALBUTEROL [Concomitant]
     Indication: ASTHMA
     Dosage: 2 SPRAYS
  9. VITAMIN B COMPLEX [Concomitant]
     Indication: ASTHENIA
  10. CALCIUM D3 [CALCIUM,COLECALCIFEROL] [Concomitant]
     Indication: BONE DENSITY DECREASED
     Dosage: 500MG/400IU
  11. ASPIRIN [Concomitant]
     Indication: CARDIOVASCULAR EVENT PROPHYLAXIS
     Dosage: 81 MG, UNK
  12. CYMBALTA [Concomitant]
     Indication: DEPRESSION
     Dosage: 60 MG, UNK
  13. CYMBALTA [Concomitant]
     Indication: ANXIETY
  14. SINGULAIR [Concomitant]
     Indication: ASTHMA
     Dosage: 10 MG, UNK
  15. LIPITOR [Concomitant]
     Indication: BLOOD CHOLESTEROL INCREASED
     Dosage: 10 MG, UNK
  16. COZAAR [Concomitant]
     Dosage: 100 MG, UNK
  17. CLONAZEPAM [Concomitant]
     Indication: ANXIETY
     Dosage: 0.5 MG, UNK
  18. CLONAZEPAM [Concomitant]
     Indication: MUSCLE SPASMS
  19. TYLENOL [PARACETAMOL] [Concomitant]
     Indication: PREMEDICATION
  20. TYLENOL [PARACETAMOL] [Concomitant]
     Indication: HEADACHE
  21. K-DUR [Concomitant]
     Indication: JOINT SWELLING
     Dosage: 20 MEQ, UNK
  22. MAGNESIUM OXIDE [Concomitant]
     Indication: JOINT SWELLING
     Dosage: 400 MG, UNK
  23. FUROSEMIDE [Concomitant]
     Indication: JOINT SWELLING
     Dosage: 40 MG, UNK
  24. CLONIDINE [Concomitant]
     Indication: BLOOD PRESSURE INCREASED
     Dosage: 0.1 MG, UNK
  25. DIAZEPAM [Concomitant]
     Indication: ANXIETY
     Dosage: 5 MG, UNK
  26. PROCRIT [Concomitant]
     Indication: ANAEMIA
     Dosage: EVERY 2 WEEKS
  27. PROCRIT [Concomitant]
     Indication: MYELODYSPLASTIC SYNDROME
  28. GAMUNEX [Concomitant]
     Indication: MULTIPLE SCLEROSIS
     Dosage: 45 G QD X3DAYS/MONTH

REACTIONS (3)
  - Multiple sclerosis relapse [Recovered/Resolved]
  - Back pain [Recovered/Resolved]
  - Urinary tract infection [None]
